FAERS Safety Report 6978074-3 (Version None)
Quarter: 2010Q3

REPORT INFORMATION
  Report Type: 
  Country: None (occurrence: None)
  Receive Date: 20100913
  Receipt Date: 20100906
  Transmission Date: 20110219
  Serious: No
  Sender: FDA-Public Use
  Company Number: KR-JNJFOC-20100901364

PATIENT
  Age: 79 Year
  Sex: Male

DRUGS (2)
  1. DURAGESIC-100 [Suspect]
     Indication: PAIN MANAGEMENT
     Route: 062
  2. MOTILIUM-M [Concomitant]
     Indication: ANTIEMETIC SUPPORTIVE CARE
     Dosage: 2 TABLETS (10 MG) THREE TIMES A DAY
     Route: 048
     Dates: start: 20100101

REACTIONS (4)
  - ASTHENIA [None]
  - DIZZINESS [None]
  - DRUG ADMINISTRATION ERROR [None]
  - HEADACHE [None]
